FAERS Safety Report 6492400-3 (Version None)
Quarter: 2009Q4

REPORT INFORMATION
  Report Type: 
  Country: None (occurrence: None)
  Receive Date: 20091214
  Receipt Date: 20091202
  Transmission Date: 20100525
  Serious: Yes (Death)
  Sender: FDA-Public Use
  Company Number: CN-ROCHE-672360

PATIENT
  Sex: Male
  Weight: 57 kg

DRUGS (2)
  1. CAPECITABINE [Suspect]
     Indication: NON-SMALL CELL LUNG CANCER
     Dosage: FORM: PELLET. LAST DOSE PRIOR TO SAE: 26 NOV 2009. PARMANENTLY DISCONTINUED.
     Route: 048
     Dates: start: 20090912, end: 20091129
  2. ERLOTINIB [Suspect]
     Indication: NON-SMALL CELL LUNG CANCER
     Dosage: OTHER: PELLET. LAST DOSE PRIOR TO SAE: 28 NOV 2009. PERMANENTLY DISCONTINUED.
     Route: 048
     Dates: start: 20090912, end: 20091129

REACTIONS (1)
  - RESPIRATORY FAILURE [None]
